FAERS Safety Report 13754920 (Version 1)
Quarter: 2017Q3

REPORT INFORMATION
  Report Type: Spontaneous
  Country: CO (occurrence: CO)
  Receive Date: 20170714
  Receipt Date: 20170714
  Transmission Date: 20171127
  Serious: Yes (Other)
  Sender: FDA-Public Use
  Company Number: CO-AMGEN-COLSP2017103452

PATIENT
  Sex: Female

DRUGS (1)
  1. PROLIA [Suspect]
     Active Substance: DENOSUMAB
     Indication: PRODUCT USED FOR UNKNOWN INDICATION
     Dosage: UNK
     Route: 065

REACTIONS (18)
  - Facial pain [Unknown]
  - Asthenia [Unknown]
  - Respiratory distress [Unknown]
  - Vision blurred [Unknown]
  - Abdominal pain [Unknown]
  - Toothache [Unknown]
  - Pollakiuria [Unknown]
  - Mastication disorder [Unknown]
  - Tooth loss [Unknown]
  - Ear pain [Unknown]
  - Arthralgia [Unknown]
  - Abdominal pain upper [Unknown]
  - Dysphagia [Unknown]
  - Pain [Unknown]
  - Stomatitis [Unknown]
  - Pharyngeal inflammation [Unknown]
  - Chills [Unknown]
  - Loose tooth [Unknown]
